FAERS Safety Report 4764063-6 (Version None)
Quarter: 2005Q3

REPORT INFORMATION
  Report Type: 
  Country: None (occurrence: None)
  Receive Date: 20050906
  Receipt Date: 20050823
  Transmission Date: 20060218
  Serious: Yes (Other)
  Sender: FDA-Public Use
  Company Number: 2005120075

PATIENT
  Age: 37 Year
  Sex: Female
  Weight: 48.5349 kg

DRUGS (3)
  1. ZOLOFT [Suspect]
     Indication: ILL-DEFINED DISORDER
     Dosage: 25 MG (25 MG, 1 IN 1 D), ORAL
     Route: 048
     Dates: start: 20050401
  2. LUNESTA [Suspect]
     Indication: INSOMNIA
     Dosage: 1 MG (1 MG, 1 IN 1 D), ORAL
     Route: 048
     Dates: start: 20050401, end: 20050401
  3. PERCOCET [Suspect]
     Indication: VERTIGO
     Dosage: AS NEEDED
     Dates: start: 20050101

REACTIONS (9)
  - CAESAREAN SECTION [None]
  - DEATH OF PET [None]
  - DRUG EXPOSURE DURING PREGNANCY [None]
  - INSOMNIA [None]
  - PREGNANCY [None]
  - ROAD TRAFFIC ACCIDENT [None]
  - STRESS [None]
  - SURGERY [None]
  - VERTIGO [None]
